FAERS Safety Report 18263925 (Version 4)
Quarter: 2021Q1

REPORT INFORMATION
  Report Type: Report from Study
  Country: DK (occurrence: DK)
  Receive Date: 20200914
  Receipt Date: 20210305
  Transmission Date: 20210419
  Serious: Yes (Hospitalization)
  Sender: FDA-Public Use
  Company Number: DK-AMGEN-DNKCT2020146373

PATIENT
  Age: 10 Year
  Sex: Male
  Weight: 38.2 kg

DRUGS (34)
  1. DEXAMETHASONE. [Suspect]
     Active Substance: DEXAMETHASONE
     Indication: ACUTE LYMPHOCYTIC LEUKAEMIA
     Dosage: 3.5 MILLIGRAM
     Route: 065
     Dates: start: 20130430
  2. SULFAMETHOXAZOLE;TRIMETHOPRIM [Concomitant]
     Active Substance: SULFAMETHOXAZOLE\TRIMETHOPRIM
     Dosage: 1 UNK
     Route: 048
     Dates: start: 20200802
  3. METOPROLOL SUCCINATE. [Concomitant]
     Active Substance: METOPROLOL SUCCINATE
     Dosage: 50 MILLIGRAM
     Route: 048
     Dates: start: 20200810, end: 20201013
  4. POSACONAZOL [Concomitant]
     Active Substance: POSACONAZOLE
     Dosage: 300 MILLIGRAM
     Route: 048
     Dates: start: 20200824, end: 20200914
  5. METHOTREXAT [METHOTREXATE] [Concomitant]
     Active Substance: METHOTREXATE
     Dosage: 15 MILLIGRAM
     Route: 037
     Dates: start: 20130429
  6. FUROSEMID [FUROSEMIDE] [Concomitant]
     Active Substance: FUROSEMIDE
     Dosage: 10 UNK AND 10 MILLIGRAM
     Dates: start: 20200730, end: 20200906
  7. MACROGOL [Concomitant]
     Active Substance: POLYETHYLENE GLYCOLS
     Dosage: 1 UNK
     Route: 048
     Dates: start: 20200731, end: 20200819
  8. ONDANSETRON [Concomitant]
     Active Substance: ONDANSETRON
     Dosage: 6 MILLIGRAM
     Route: 048
     Dates: start: 20200806, end: 20200819
  9. FUROSEMIDE. [Concomitant]
     Active Substance: FUROSEMIDE
     Indication: DYSPNOEA AT REST
     Dosage: UNK TID
     Route: 048
  10. DAUNORUBICIN [Concomitant]
     Active Substance: DAUNORUBICIN
     Dosage: UNK AND 28.75?29.25 MILLIGRAM
     Dates: start: 20130806
  11. NIFEDIPIN [Concomitant]
     Active Substance: NIFEDIPINE
     Dosage: 10?30 MILLIGRAM
     Route: 048
     Dates: start: 20200808, end: 20201002
  12. HUMAN ALBUMIN [Concomitant]
     Active Substance: ALBUMIN HUMAN
     Dosage: 200 MILLILITER
     Route: 042
     Dates: start: 20200808, end: 20200808
  13. MEROPENEM. [Concomitant]
     Active Substance: MEROPENEM
     Dosage: 800 MILLIGRAM
     Route: 042
     Dates: start: 20200813, end: 20200819
  14. CYCLOPHOSPHAMIDE. [Concomitant]
     Active Substance: CYCLOPHOSPHAMIDE
     Dosage: 1180 MILLIGRAM
     Dates: start: 20130910
  15. BUPIVACAIN [Concomitant]
     Active Substance: BUPIVACAINE
     Dosage: 2.5 UNK
     Route: 058
     Dates: start: 20200730, end: 20201001
  16. PIPERACILLIN/TAZOBACTAM [Concomitant]
     Active Substance: PIPERACILLIN SODIUM\TAZOBACTAM SODIUM
     Dosage: 4 GRAM
     Route: 042
     Dates: start: 20200730, end: 20200813
  17. ERWINIA [Concomitant]
     Active Substance: ASPARAGINASE ERWINIA CHRYSANTHEMI
     Dosage: 29500 INTERNATIONAL UNIT
     Dates: start: 20200807
  18. METOPIMAZINE [Concomitant]
     Active Substance: METOPIMAZINE
     Dosage: 7.5 MILLIGRAM
     Route: 048
     Dates: start: 20200804, end: 20200819
  19. FENTANYL. [Concomitant]
     Active Substance: FENTANYL
     Dosage: 50 UNK
     Route: 042
     Dates: start: 20200730, end: 20201001
  20. HYDROCORTISON [HYDROCORTISONE] [Concomitant]
     Dosage: 2.5 MILLIGRAM
     Route: 048
     Dates: start: 20200821, end: 20201002
  21. MERCAPTOPURIN [Concomitant]
     Active Substance: MERCAPTOPURINE
     Dosage: 75 MILLIGRAM
     Route: 048
     Dates: start: 20130528, end: 20200911
  22. PHOSPHORUS [Concomitant]
     Active Substance: PHOSPHORUS
     Dosage: 2 UNK
     Route: 048
     Dates: start: 20200803, end: 20200810
  23. PROPOFOL. [Concomitant]
     Active Substance: PROPOFOL
     Dosage: 5?10 UNK
     Route: 042
     Dates: start: 20200730, end: 20201001
  24. PARACETAMOL [Concomitant]
     Active Substance: ACETAMINOPHEN
     Dosage: 10 UNK AND  500 MILLIGRAM
     Dates: start: 20200730, end: 20200923
  25. DARROW LIQ GLUCOSE [Concomitant]
     Active Substance: DEXTROSE\POTASSIUM CHLORIDE\SODIUM CHLORIDE\SODIUM CITRATE
     Dosage: 125 MILLILITER
     Route: 042
     Dates: start: 20200731, end: 20200918
  26. CLEMASTINE [Concomitant]
     Active Substance: CLEMASTINE
     Dosage: 0.75 MILLIGRAM
     Route: 042
     Dates: start: 20200821, end: 20200821
  27. CARFILZOMIB [Suspect]
     Active Substance: CARFILZOMIB
     Indication: ACUTE LYMPHOCYTIC LEUKAEMIA
     Dosage: 66.08 MILLIGRAM, PER CHEMO REGIM
     Route: 042
     Dates: start: 20200731
  28. VINCRISTINE [Concomitant]
     Active Substance: VINCRISTINE
     Dosage: 1.725?1.755 MILLIGRAM
     Dates: start: 20130430
  29. CYTARABINE. [Concomitant]
     Active Substance: CYTARABINE
     Dosage: 88.5 MILLIGRAM
     Route: 042
     Dates: start: 20200903
  30. ESOMEPRAZOL [ESOMEPRAZOLE] [Concomitant]
     Active Substance: ESOMEPRAZOLE
     Dosage: 20 MILLIGRAM
     Route: 048
     Dates: start: 20200801, end: 20200903
  31. UNIKALK SILVER [Concomitant]
     Dosage: 1 UNK
     Route: 048
     Dates: start: 20200803
  32. CASPOFUNGIN [Concomitant]
     Active Substance: CASPOFUNGIN
     Dosage: 50?60 MILLIGRAM
     Route: 042
     Dates: start: 20200807, end: 20201002
  33. METHOTREXATE. [Concomitant]
     Active Substance: METHOTREXATE
     Dosage: 15 MILLIGRAM
     Route: 037
     Dates: start: 20200807, end: 20200917
  34. UROMITEXAN [Concomitant]
     Active Substance: MESNA
     Dosage: 235 MILLIGRAM
     Route: 042
     Dates: start: 20200903, end: 20200903

REACTIONS (1)
  - Dyspnoea at rest [Recovered/Resolved]

NARRATIVE: CASE EVENT DATE: 20200906
